FAERS Safety Report 8938640 (Version 1)
Quarter: 2012Q4

REPORT INFORMATION
  Report Type: Spontaneous
  Country: US (occurrence: None)
  Receive Date: 20121129
  Receipt Date: 20121129
  Transmission Date: 20130627
  Serious: Yes (Hospitalization)
  Sender: FDA-Public Use
  Company Number: None

PATIENT
  Age: 48 Year
  Sex: Male
  Weight: 86.18 kg

DRUGS (1)
  1. ATORVASTATIN [Suspect]
     Indication: HIGH CHOLESTEROL
     Route: 048
     Dates: start: 20121012, end: 20121031

REACTIONS (3)
  - Abdominal pain upper [None]
  - Gastrointestinal pain [None]
  - Product substitution issue [None]
